FAERS Safety Report 4917188-6 (Version None)
Quarter: 2006Q1

REPORT INFORMATION
  Report Type: 
  Country: None (occurrence: None)
  Receive Date: 20060216
  Receipt Date: 20060216
  Transmission Date: 20060701
  Serious: Yes (Death)
  Sender: FDA-Public Use
  Company Number: None

PATIENT
  Sex: Male
  Weight: 70.9 kg

DRUGS (2)
  1. CASODEX [Suspect]
     Indication: PROSTATE CANCER
     Dosage: 1450 MG
  2. ZOLADEX [Suspect]
     Dosage: 10.8 MG

REACTIONS (3)
  - CONFUSIONAL STATE [None]
  - PAIN [None]
  - PERFORMANCE STATUS DECREASED [None]
